FAERS Safety Report 9056320 (Version 2)
Quarter: 2013Q1

REPORT INFORMATION
  Report Type: Spontaneous
  Country: FR (occurrence: FR)
  Receive Date: 20130204
  Receipt Date: 20130307
  Transmission Date: 20140127
  Serious: Yes (Hospitalization)
  Sender: FDA-Public Use
  Company Number: FR-ROCHE-1186893

PATIENT
  Age: 61 Year
  Sex: Male

DRUGS (7)
  1. COPEGUS [Suspect]
     Indication: HEPATITIS C
     Route: 048
     Dates: start: 20121031, end: 20121220
  2. PEGASYS [Suspect]
     Indication: HEPATITIS C
     Route: 058
     Dates: start: 20121031, end: 20121220
  3. INCIVO [Suspect]
     Indication: HEPATITIS C
     Route: 048
     Dates: start: 20121031, end: 20121220
  4. LYRICA [Concomitant]
     Route: 048
  5. URBANYL [Concomitant]
     Route: 048
  6. LEVOTHYROX [Concomitant]
     Route: 048
  7. VIMPAT [Concomitant]

REACTIONS (2)
  - Drug reaction with eosinophilia and systemic symptoms [Recovering/Resolving]
  - Generalised oedema [Recovering/Resolving]
